FAERS Safety Report 7355138-6 (Version None)
Quarter: 2011Q1

REPORT INFORMATION
  Report Type: 
  Country: None (occurrence: None)
  Receive Date: 20110314
  Receipt Date: 20110314
  Transmission Date: 20110831
  Serious: Yes (Life-Threatening, Other)
  Sender: FDA-Public Use
  Company Number: None

PATIENT
  Age: 52 Year
  Sex: Female
  Weight: 80.7403 kg

DRUGS (1)
  1. ALCOHOL WIPES PACKETS TRIAD [Suspect]
     Indication: MULTIPLE SCLEROSIS
     Dosage: 3 PADS EVERY 4 HOURS OTHER
     Route: 050
     Dates: start: 20001001, end: 20110122

REACTIONS (18)
  - SEPSIS [None]
  - OPTIC NEURITIS [None]
  - ACTIVITIES OF DAILY LIVING IMPAIRED [None]
  - FATIGUE [None]
  - ABSCESS [None]
  - WEIGHT INCREASED [None]
  - RENAL FAILURE [None]
  - ASTHENIA [None]
  - PRODUCT CONTAMINATION [None]
  - ENDOCARDITIS [None]
  - INSOMNIA [None]
  - PRODUCT QUALITY ISSUE [None]
  - PAIN [None]
  - WOUND SECRETION [None]
  - CARDIAC FAILURE [None]
  - VISUAL IMPAIRMENT [None]
  - BODY TEMPERATURE INCREASED [None]
  - THROMBOSIS [None]
